FAERS Safety Report 5424868-5 (Version None)
Quarter: 2007Q3

REPORT INFORMATION
  Report Type: 
  Country: None (occurrence: None)
  Receive Date: 20070822
  Receipt Date: 20070809
  Transmission Date: 20080115
  Serious: Yes (Life-Threatening, Hospitalization)
  Sender: FDA-Public Use
  Company Number: MPS1-10731

PATIENT
  Age: 20 Year
  Sex: Female
  Weight: 37.3 kg

DRUGS (1)
  1. ALDURAZYME [Suspect]
     Indication: MUCOPOLYSACCHARIDOSIS I
     Dosage: 23.2 MG QWK IV
     Route: 042
     Dates: start: 20070802

REACTIONS (3)
  - BACK PAIN [None]
  - CARDIO-RESPIRATORY ARREST [None]
  - CONVULSION [None]
